FAERS Safety Report 14717503 (Version 1)
Quarter: 2018Q2

REPORT INFORMATION
  Report Type: Spontaneous
  Country: US (occurrence: US)
  Receive Date: 20180404
  Receipt Date: 20180404
  Transmission Date: 20180711
  Serious: No
  Sender: FDA-Public Use
  Company Number: US-SA-2018SA007532

PATIENT
  Age: 33 Year
  Sex: Male
  Weight: 97.5 kg

DRUGS (2)
  1. DUPIXENT [Suspect]
     Active Substance: DUPILUMAB
     Indication: DERMATITIS ATOPIC
     Dosage: FREQUENCY: GETTING EVERY 3-4 WEEKS
     Route: 058
     Dates: start: 2017
  2. DUPIXENT [Suspect]
     Active Substance: DUPILUMAB
     Indication: DERMATITIS ATOPIC
     Route: 058
     Dates: start: 201709

REACTIONS (5)
  - Erythema of eyelid [Unknown]
  - Eyelids pruritus [Unknown]
  - Product use issue [Unknown]
  - Eyelid margin crusting [Unknown]
  - Rash [Unknown]

NARRATIVE: CASE EVENT DATE: 201712
